FAERS Safety Report 8375925-5 (Version None)
Quarter: 2012Q2

REPORT INFORMATION
  Report Type: 
  Country: None (occurrence: None)
  Receive Date: 20120522
  Receipt Date: 20120514
  Transmission Date: 20120825
  Serious: Yes (Hospitalization)
  Sender: FDA-Public Use
  Company Number: MY-BRISTOL-MYERS SQUIBB COMPANY-15295512

PATIENT
  Age: 50 Year
  Sex: Female
  Weight: 44 kg

DRUGS (9)
  1. FLUOROURACIL [Suspect]
     Indication: COLORECTAL CANCER METASTATIC
     Dosage: 400MG/M2BOLUS,2400MG/M2CONTIN INF;46HRS REC.INF ON7SEP10-14SEP10;RESTARTED ON 19SEP10
     Route: 042
     Dates: start: 20100907
  2. POTASSIUM CHLORIDE [Concomitant]
     Route: 042
     Dates: start: 20100917, end: 20100922
  3. HYOSCINE BUTYLBROMIDE [Concomitant]
     Indication: PROPHYLAXIS
     Route: 048
     Dates: start: 20100907, end: 20100912
  4. DEXAMETHASONE [Concomitant]
     Indication: PROPHYLAXIS
     Route: 048
     Dates: start: 20100907, end: 20100912
  5. ULTRACET [Concomitant]
     Dosage: ULTRACET 325
     Route: 048
     Dates: start: 20100914
  6. LEUCOVORIN CALCIUM [Suspect]
     Indication: COLORECTAL CANCER METASTATIC
     Dosage: 1ST AND REC.INF ON 07SEP10-14SEP10.RESTARTED ON 19SEP10,286MG/M2
     Route: 042
     Dates: start: 20100907
  7. ESOMEPRAZOLE MAGNESIUM [Concomitant]
     Route: 042
     Dates: start: 20100915, end: 20101001
  8. CETUXIMAB [Suspect]
     Indication: COLORECTAL CANCER METASTATIC
     Dosage: INF:1;STRENGTH:5MG/ML.REC.INF ON 07SEP2010-14SEP10. RESTART 19SEP10
     Route: 042
     Dates: start: 20100907
  9. OXALIPLATIN [Suspect]
     Indication: COLORECTAL CANCER METASTATIC
     Dosage: 1ST AND REC.INF ON 07SEP10-14SEP10.REST ON 19SEP10,140MG/M2.
     Route: 042
     Dates: start: 20100907

REACTIONS (6)
  - ANAEMIA [None]
  - LUNG CONSOLIDATION [None]
  - INTESTINAL OBSTRUCTION [None]
  - HYPONATRAEMIA [None]
  - HYPOKALAEMIA [None]
  - DEHYDRATION [None]
